FAERS Safety Report 10813195 (Version 1)
Quarter: 2015Q1

REPORT INFORMATION
  Report Type: Report from Study
  Country: US (occurrence: US)
  Receive Date: 20150218
  Receipt Date: 20150218
  Transmission Date: 20150721
  Serious: No
  Sender: FDA-Public Use
  Company Number: US-ABBVIE-14K-163-1271863-00

PATIENT
  Age: 41 Year
  Sex: Female

DRUGS (5)
  1. HUMIRA [Suspect]
     Active Substance: ADALIMUMAB
     Indication: RHEUMATOID ARTHRITIS
     Dates: start: 200701
  2. METHOTREXATE [Concomitant]
     Active Substance: METHOTREXATE
     Indication: RHEUMATOID ARTHRITIS
     Dosage: 5 WEEKLY
  3. UNKNOWN MEDICATION [Suspect]
     Active Substance: UNSPECIFIED INGREDIENT
     Indication: IRRITABLE BOWEL SYNDROME
     Dates: end: 2008
  4. IMIPRAMINE [Concomitant]
     Active Substance: IMIPRAMINE
     Indication: PRODUCT USED FOR UNKNOWN INDICATION
     Dosage: TWO AT BEDTIME
     Dates: start: 2008
  5. PLAQUENIL [Concomitant]
     Active Substance: HYDROXYCHLOROQUINE SULFATE
     Indication: RHEUMATOID ARTHRITIS
     Dosage: TWO TABLETS ONCE DAILY

REACTIONS (9)
  - Injection site hypoaesthesia [Unknown]
  - Drug ineffective [Unknown]
  - Wrong technique in drug usage process [Unknown]
  - Injury associated with device [Unknown]
  - Fibromyalgia [Unknown]
  - Injection site swelling [Unknown]
  - Injection site bruising [Unknown]
  - Abdominal pain [Not Recovered/Not Resolved]
  - Irritable bowel syndrome [Not Recovered/Not Resolved]

NARRATIVE: CASE EVENT DATE: 2012
